FAERS Safety Report 20015479 (Version 1)
Quarter: 2021Q4

REPORT INFORMATION
  Report Type: Spontaneous
  Country: US (occurrence: None)
  Receive Date: 20211029
  Receipt Date: 20211029
  Transmission Date: 20220303
  Serious: Yes (Death, Hospitalization)
  Sender: FDA-Public Use
  Company Number: None

PATIENT
  Age: 17 Year
  Sex: Male
  Weight: 55.6 kg

DRUGS (6)
  1. CYTARABINE [Suspect]
     Active Substance: CYTARABINE
     Dates: end: 20211004
  2. DAUNORUBICIN [Suspect]
     Active Substance: DAUNORUBICIN
     Dates: end: 20211018
  3. METHOTREXATE [Suspect]
     Active Substance: METHOTREXATE
     Dates: end: 20211011
  4. ONCASPAR [Suspect]
     Active Substance: PEGASPARGASE
     Dates: end: 20211007
  5. PREDNISOLONE [Suspect]
     Active Substance: PREDNISOLONE
     Dates: end: 20211020
  6. VINCRISTINE SULFATE [Suspect]
     Active Substance: VINCRISTINE SULFATE
     Dates: end: 20211018

REACTIONS (7)
  - Burkitt^s leukaemia [None]
  - Pneumothorax [None]
  - Septic embolus [None]
  - Pulmonary haemorrhage [None]
  - Embolic stroke [None]
  - Basal ganglia stroke [None]
  - Cerebellar stroke [None]

NARRATIVE: CASE EVENT DATE: 20211026
